FAERS Safety Report 10059295 (Version 1)
Quarter: 2014Q2

REPORT INFORMATION
  Report Type: Spontaneous
  Country: US (occurrence: US)
  Receive Date: 20140404
  Receipt Date: 20140404
  Transmission Date: 20141212
  Serious: Yes (Death)
  Sender: FDA-Public Use
  Company Number: US-GE HEALTHCARE MEDICAL DIAGNOSTICS-OSCN-PR-0904S-0208

PATIENT
  Sex: Female

DRUGS (5)
  1. MAGNEVIST [Suspect]
     Indication: RENAL ARTERY STENOSIS
     Route: 042
     Dates: start: 20020729, end: 20020729
  2. MAGNEVIST [Suspect]
     Indication: HYPERTENSION
     Route: 042
     Dates: start: 20010719, end: 20010719
  3. MAGNEVIST [Suspect]
     Indication: RENAL FAILURE CHRONIC
     Route: 042
     Dates: start: 20020320, end: 20020320
  4. PROHANCE [Suspect]
     Indication: VOMITING
     Route: 042
     Dates: start: 20020827, end: 20020827
  5. PROHANCE [Suspect]
     Indication: NAUSEA
     Route: 042
     Dates: start: 20020930, end: 20020930

REACTIONS (1)
  - Nephrogenic systemic fibrosis [Fatal]
